FAERS Safety Report 9617701 (Version 3)
Quarter: 2014Q2

REPORT INFORMATION
  Report Type: Spontaneous
  Country: JP (occurrence: JP)
  Receive Date: 20131011
  Receipt Date: 20140618
  Transmission Date: 20141212
  Serious: Yes (Hospitalization)
  Sender: FDA-Public Use
  Company Number: JP-009507513-1310JPN002304

PATIENT
  Age: 72 Year
  Sex: Female

DRUGS (1)
  1. BONALON [Suspect]
     Indication: OSTEOPOROSIS
     Dosage: DAILY DOSAGE UNKNOWN
     Route: 048
     Dates: start: 2006

REACTIONS (1)
  - Atypical femur fracture [Recovering/Resolving]
